FAERS Safety Report 24080237 (Version 5)
Quarter: 2024Q4

REPORT INFORMATION
  Report Type: Spontaneous
  Country: US (occurrence: US)
  Receive Date: 20240711
  Receipt Date: 20241217
  Transmission Date: 20250114
  Serious: No
  Sender: BRISTOL-MYERS SQUIBB COMPANY
  Company Number: US-BRISTOL-MYERS SQUIBB COMPANY-2024-109870

PATIENT
  Age: 74 Year
  Sex: Male

DRUGS (3)
  1. REVLIMID [Suspect]
     Active Substance: LENALIDOMIDE
     Indication: Plasma cell myeloma
     Route: 048
  2. REVLIMID [Suspect]
     Active Substance: LENALIDOMIDE
     Indication: Bone neoplasm
  3. ELIQUIS [Suspect]
     Active Substance: APIXABAN
     Indication: Product used for unknown indication

REACTIONS (10)
  - Vision blurred [Unknown]
  - Constipation [Unknown]
  - Eye disorder [Unknown]
  - Back pain [Unknown]
  - Depression [Unknown]
  - Fatigue [Unknown]
  - Asthenia [Unknown]
  - Contusion [Unknown]
  - Dizziness exertional [Unknown]
  - Heart rate increased [Unknown]
